FAERS Safety Report 11697859 (Version 3)
Quarter: 2016Q1

REPORT INFORMATION
  Report Type: Report from Study
  Country: IE (occurrence: IE)
  Receive Date: 20151104
  Receipt Date: 20160323
  Transmission Date: 20160525
  Serious: Yes (Other)
  Sender: FDA-Public Use
  Company Number: IE-TEVA-605020ISR

PATIENT
  Age: 57 Year
  Sex: Female

DRUGS (3)
  1. COPAXONE [Suspect]
     Active Substance: GLATIRAMER ACETATE
     Dosage: TREATMENT WITH COPAXONE 40MG/ML RECOMMENCED
     Route: 058
     Dates: start: 20160223
  2. AMITRIPTYLINE 25 MG FILM-COATED TABLETS [Concomitant]
     Dosage: 25 MILLIGRAM DAILY;
  3. COPAXONE [Suspect]
     Active Substance: GLATIRAMER ACETATE
     Indication: RELAPSING-REMITTING MULTIPLE SCLEROSIS
     Dosage: TREATMENT WITH COPAXONE 40MG/ML TEMPORARILY DISCONTINUED
     Route: 058
     Dates: start: 20150924, end: 20151023

REACTIONS (1)
  - Sensation of foreign body [Recovered/Resolved]

NARRATIVE: CASE EVENT DATE: 20150926
